FAERS Safety Report 25984220 (Version 1)
Quarter: 2025Q4

REPORT INFORMATION
  Report Type: Spontaneous
  Country: US (occurrence: None)
  Receive Date: 20251030
  Receipt Date: 20251030
  Transmission Date: 20260117
  Serious: No
  Sender: FDA-CTU
  Company Number: None

PATIENT
  Age: 26 Year
  Sex: Female
  Weight: 65.25 kg

DRUGS (1)
  1. RINVOQ [Suspect]
     Active Substance: UPADACITINIB
     Dosage: 30 MG DAILY ORAL ?
     Route: 048

REACTIONS (1)
  - Pruritus [None]

NARRATIVE: CASE EVENT DATE: 20251030
